FAERS Safety Report 14084542 (Version 1)
Quarter: 2017Q4

REPORT INFORMATION
  Report Type: Spontaneous
  Country: US (occurrence: None)
  Receive Date: 20171013
  Receipt Date: 20171013
  Transmission Date: 20180321
  Serious: Yes (Hospitalization)
  Sender: FDA-Public Use
  Company Number: None

PATIENT
  Age: 64 Year
  Sex: Female

DRUGS (11)
  1. ENBREL [Suspect]
     Active Substance: ETANERCEPT
     Indication: RHEUMATOID ARTHRITIS
     Route: 058
     Dates: start: 20170620
  2. CYCLOBENZAPR [Concomitant]
     Active Substance: CYCLOBENZAPRINE
  3. GABAPENTIN. [Concomitant]
     Active Substance: GABAPENTIN
  4. CALTRATE WITH VITAMIN D [Concomitant]
     Active Substance: CALCIUM CARBONATE\CHOLECALCIFEROL
  5. VITAMIN D3 [Concomitant]
     Active Substance: CHOLECALCIFEROL
  6. METOPROL TAR [Concomitant]
  7. ACYCLOVIR. [Concomitant]
     Active Substance: ACYCLOVIR
  8. ASPIRIN. [Concomitant]
     Active Substance: ASPIRIN
  9. ATORVASTATIN [Concomitant]
     Active Substance: ATORVASTATIN
  10. HYDROXYCHLOR [Concomitant]
     Active Substance: HYDROXYCHLOROQUINE
  11. LIDODERM [Concomitant]
     Active Substance: LIDOCAINE

REACTIONS (3)
  - Fatigue [None]
  - Drug dose omission [None]
  - Injection site reaction [None]
